FAERS Safety Report 5485170-9 (Version None)
Quarter: 2007Q4

REPORT INFORMATION
  Report Type: 
  Country: None (occurrence: None)
  Receive Date: 20071015
  Receipt Date: 20071009
  Transmission Date: 20080405
  Serious: Yes (Death, Hospitalization)
  Sender: FDA-Public Use
  Company Number: PHEH2007US12833

PATIENT
  Age: 68 Year
  Sex: Female

DRUGS (7)
  1. EXJADE [Suspect]
     Indication: IRON OVERLOAD
     Dosage: UNK, QD
     Route: 048
     Dates: start: 20060701, end: 20070917
  2. LASIX [Concomitant]
  3. OXYCONTIN [Concomitant]
  4. OXYCODONE HCL [Concomitant]
  5. ATARAX /AUS/ [Concomitant]
  6. FOLIC ACID [Concomitant]
  7. ADVAIR DISKUS 100/50 [Concomitant]

REACTIONS (8)
  - CARDIAC FAILURE CONGESTIVE [None]
  - CHRONIC OBSTRUCTIVE PULMONARY DISEASE [None]
  - DYSPNOEA [None]
  - PAIN [None]
  - PEPTIC ULCER [None]
  - PULMONARY HYPERTENSION [None]
  - RESPIRATORY DISTRESS [None]
  - URINARY TRACT INFECTION [None]
